FAERS Safety Report 14538555 (Version 1)
Quarter: 2018Q1

REPORT INFORMATION
  Report Type: Report from Study
  Country: None (occurrence: CA)
  Receive Date: 20180216
  Receipt Date: 20180216
  Transmission Date: 20180509
  Serious: Yes (Hospitalization, Other)
  Sender: FDA-Public Use
  Company Number: CA-ABBVIE-18K-028-2245876-00

PATIENT
  Age: 78 Year
  Sex: Female
  Weight: 58.5 kg

DRUGS (2)
  1. DUODOPA [Suspect]
     Active Substance: CARBIDOPA\LEVODOPA
     Dosage: MORNING BOLUS: 11 ML??CONTINUOUS DOSE RATE: 2.6 ML/HOUR??EXTRA BOLUS AMOUNT: 0.5 ML
     Route: 050
     Dates: start: 20171205
  2. DUODOPA [Suspect]
     Active Substance: CARBIDOPA\LEVODOPA
     Indication: PARKINSON^S DISEASE
     Dosage: MORNING BOLUS: 11 ML??CONTINUOUS DOSE RATE: 2.6 ML/HOUR??EXTRA BOLUS AMOUNT: 0.5 ML
     Route: 050
     Dates: start: 20171129, end: 20171203

REACTIONS (4)
  - Pneumoperitoneum [Recovered/Resolved]
  - Sepsis [Unknown]
  - Gastric perforation [Unknown]
  - Peritonitis [Unknown]

NARRATIVE: CASE EVENT DATE: 2017
